FAERS Safety Report 5491061-X (Version None)
Quarter: 2007Q4

REPORT INFORMATION
  Report Type: 
  Country: None (occurrence: None)
  Receive Date: 20071019
  Receipt Date: 20071010
  Transmission Date: 20080405
  Serious: Yes (Hospitalization, Disabling, Other)
  Sender: FDA-Public Use
  Company Number: US-PFIZER INC-2007043518

PATIENT
  Sex: Male
  Weight: 83.9 kg

DRUGS (1)
  1. CELEBREX [Suspect]
     Indication: ARTHRITIS
     Dates: start: 19980101, end: 20041009

REACTIONS (5)
  - CEREBROVASCULAR ACCIDENT [None]
  - DIABETES MELLITUS [None]
  - DIZZINESS [None]
  - JOINT STIFFNESS [None]
  - MYOCARDIAL INFARCTION [None]
